FAERS Safety Report 5001846-1 (Version None)
Quarter: 2006Q2

REPORT INFORMATION
  Report Type: 
  Country: None (occurrence: None)
  Receive Date: 20060512
  Receipt Date: 20060512
  Transmission Date: 20061013
  Serious: Yes (Hospitalization)
  Sender: FDA-Public Use
  Company Number: None

PATIENT
  Age: 17 Year
  Sex: Female

DRUGS (4)
  1. PROCANBID [Suspect]
     Indication: PHYSICAL EXAMINATION
     Dosage: 500MG BID PO
     Route: 048
     Dates: start: 20060501, end: 20060510
  2. TOPROL-XL [Concomitant]
  3. VICODIN [Concomitant]
  4. MOTRIN [Concomitant]

REACTIONS (1)
  - NEUROMYOPATHY [None]
